FAERS Safety Report 18709117 (Version 2)
Quarter: 2021Q1

REPORT INFORMATION
  Report Type: Spontaneous
  Country: US (occurrence: US)
  Receive Date: 20210107
  Receipt Date: 20210115
  Transmission Date: 20210419
  Serious: Yes (Hospitalization, Other)
  Sender: FDA-Public Use
  Company Number: US-AUROBINDO-AUR-APL-2021-000394

PATIENT
  Age: 61 Year
  Sex: Female

DRUGS (3)
  1. VITAMIN K [Suspect]
     Active Substance: PHYTONADIONE
     Indication: INTERNATIONAL NORMALISED RATIO
     Dosage: UNK
     Route: 065
  2. DOXYCYCLINE. [Suspect]
     Active Substance: DOXYCYCLINE
     Indication: PNEUMONIA
     Dosage: 100 MILLIGRAM
     Route: 065
  3. TENOFOVIR DISOPROXIL FUMARATE. [Suspect]
     Active Substance: TENOFOVIR DISOPROXIL FUMARATE
     Indication: ACUTE HEPATIC FAILURE
     Dosage: 300 MILLIGRAM
     Route: 065

REACTIONS (6)
  - Drug-induced liver injury [Unknown]
  - Drug ineffective [Unknown]
  - Weight decreased [Unknown]
  - Chronic hepatitis B [Unknown]
  - Acute hepatic failure [Unknown]
  - Decreased appetite [Unknown]
